FAERS Safety Report 7157104-2 (Version None)
Quarter: 2010Q4

REPORT INFORMATION
  Report Type: 
  Country: None (occurrence: None)
  Receive Date: 20101214
  Receipt Date: 20100111
  Transmission Date: 20110411
  Serious: Yes (Hospitalization)
  Sender: FDA-Public Use
  Company Number: US-ASTRAZENECA-2010SE01116

PATIENT
  Age: 62 Year
  Sex: Male

DRUGS (5)
  1. CRESTOR [Suspect]
     Indication: LOW DENSITY LIPOPROTEIN
     Route: 048
  2. METFORMIN [Concomitant]
  3. ENALAPRIL [Concomitant]
  4. PREVACID [Concomitant]
  5. ASPIRIN [Concomitant]

REACTIONS (1)
  - PANCREATITIS [None]
